FAERS Safety Report 24681365 (Version 1)
Quarter: 2024Q4

REPORT INFORMATION
  Report Type: Report from Study
  Country: BR (occurrence: BR)
  Receive Date: 20241129
  Receipt Date: 20241129
  Transmission Date: 20250115
  Serious: Yes (Other)
  Sender: ABBVIE
  Company Number: BR-ABBVIE-5991127

PATIENT
  Age: 17 Year
  Sex: Female
  Weight: 108 kg

DRUGS (3)
  1. RINVOQ [Suspect]
     Active Substance: UPADACITINIB
     Indication: Dermatitis atopic
     Dosage: FORM STRENGTH: 15 MG?MISSED DOSE FOR 5 DAYS IN AUG 2024
     Route: 048
     Dates: start: 20240701, end: 202408
  2. RINVOQ [Suspect]
     Active Substance: UPADACITINIB
     Indication: Dermatitis atopic
     Dosage: FIRST ADMIN DATE - 2024, FORM STRENGTH: 15 MG
     Route: 048
     Dates: end: 20241123
  3. DROSPIRENONE\ETHINYL ESTRADIOL [Concomitant]
     Active Substance: DROSPIRENONE\ETHINYL ESTRADIOL
     Indication: Dermatitis atopic
     Dosage: 3MG/0.2MG
     Route: 048
     Dates: start: 2022

REACTIONS (7)
  - Drug dependence [Unknown]
  - Off label use [Unknown]
  - Wound [Recovered/Resolved]
  - Dermatitis atopic [Recovered/Resolved]
  - Unevaluable event [Unknown]
  - Wound [Not Recovered/Not Resolved]
  - Hypersensitivity [Recovered/Resolved]

NARRATIVE: CASE EVENT DATE: 20240101
